FAERS Safety Report 9679961 (Version 3)
Quarter: 2013Q4

REPORT INFORMATION
  Report Type: Report from Study
  Country: US (occurrence: US)
  Receive Date: 20131110
  Receipt Date: 20131118
  Transmission Date: 20140711
  Serious: Yes (Other)
  Sender: FDA-Public Use
  Company Number: PHEH2013US009592

PATIENT
  Age: 46 Year
  Sex: Female
  Weight: 100 kg

DRUGS (4)
  1. GILENYA [Suspect]
     Indication: MULTIPLE SCLEROSIS
     Dosage: 0.5 MG, QD
     Route: 048
     Dates: start: 20120904
  2. BACLOFEN [Concomitant]
     Dosage: 20 MG, TID
     Route: 048
  3. VITAMIN D [Concomitant]
     Dosage: 50000 U, EVERY OTHER WEEK
     Route: 048
  4. B12-VITAMIIN [Concomitant]
     Dosage: 1 DF, UNK
     Route: 030

REACTIONS (8)
  - Secondary progressive multiple sclerosis [Not Recovered/Not Resolved]
  - Muscular weakness [Not Recovered/Not Resolved]
  - Feeling hot [Recovering/Resolving]
  - Arthritis [Recovering/Resolving]
  - Uhthoff^s phenomenon [Recovering/Resolving]
  - Headache [Recovering/Resolving]
  - Asthenia [Recovering/Resolving]
  - Gait disturbance [Recovering/Resolving]
